FAERS Safety Report 5166563-6 (Version None)
Quarter: 2006Q4

REPORT INFORMATION
  Report Type: 
  Country: None (occurrence: None)
  Receive Date: 20061129
  Receipt Date: 20061115
  Transmission Date: 20070319
  Serious: Yes (Other)
  Sender: FDA-Public Use
  Company Number: 2006RR-04575

PATIENT
  Age: 38 Year
  Sex: Female

DRUGS (2)
  1. ISOTRETINOIN [Suspect]
     Indication: ACNE
     Dosage: 0.5 MG/KG, QD
  2. ALDACTONE [Concomitant]

REACTIONS (4)
  - AGITATION [None]
  - HYPERGLYCAEMIA [None]
  - PYODERMA GANGRENOSUM [None]
  - SCAR [None]
